FAERS Safety Report 7207798-8 (Version None)
Quarter: 2011Q1

REPORT INFORMATION
  Report Type: 
  Country: None (occurrence: None)
  Receive Date: 20110104
  Receipt Date: 20101228
  Transmission Date: 20110831
  Serious: Yes (Other)
  Sender: FDA-Public Use
  Company Number: JP-AMGEN-JPNSP2010005241

PATIENT

DRUGS (19)
  1. ISONIAZID [Concomitant]
     Dosage: UNK
     Route: 048
     Dates: start: 20090426, end: 20091007
  2. DEPAS [Concomitant]
     Indication: INSOMNIA
     Dosage: 0.5 MG, 1X/DAY
     Route: 048
     Dates: start: 20090304, end: 20100914
  3. ENBREL [Suspect]
     Indication: RHEUMATOID ARTHRITIS
     Dosage: 25 MG, WEEKLY
     Route: 058
     Dates: start: 20090304, end: 20091101
  4. RHEUMATREX [Concomitant]
     Dosage: 8 MG, WEEKLY
     Route: 048
  5. RHEUMATREX [Concomitant]
     Dosage: 6 MG, WEEKLY
     Route: 048
     Dates: start: 20100101, end: 20100101
  6. RHEUMATREX [Concomitant]
     Dosage: 2 MG, WEEKLY
     Route: 048
     Dates: start: 20090304, end: 20090514
  7. ISONIAZID [Concomitant]
     Dosage: UNK
     Route: 048
     Dates: start: 20090426, end: 20090624
  8. FOLIAMIN [Concomitant]
     Dosage: 5 MG, WEEKLY
     Route: 048
     Dates: start: 20090304, end: 20090514
  9. RHEUMATREX [Concomitant]
     Indication: RHEUMATOID ARTHRITIS
     Dosage: 6 MG, WEEKLY
     Route: 048
     Dates: start: 20100101
  10. ENBREL [Suspect]
     Dosage: 25 MG, 2X/WEEK
     Dates: start: 20091102, end: 20100915
  11. RHEUMATREX [Concomitant]
     Dosage: 8 MG, WEEKLY
     Route: 048
     Dates: start: 20100101, end: 20100818
  12. RHEUMATREX [Concomitant]
     Dosage: 6 MG, WEEKLY
     Route: 048
     Dates: start: 20100818, end: 20100915
  13. ARAVA [Concomitant]
     Dosage: 20 MG, 1X/DAY
     Route: 048
     Dates: start: 20090304, end: 20090514
  14. ENBREL [Suspect]
  15. RHEUMATREX [Concomitant]
     Dosage: 6 MG, WEEKLY
     Route: 048
     Dates: end: 20100915
  16. ARAVA [Concomitant]
     Indication: RHEUMATOID ARTHRITIS
     Dosage: UNK
     Route: 048
     Dates: end: 20090514
  17. ENBREL [Suspect]
     Dosage: 25 MG, 2X/WEEK
     Dates: start: 20091202, end: 20100915
  18. ALFAROL [Concomitant]
     Indication: OSTEOPOROSIS
     Dosage: 1 UG, 1X/DAY
     Route: 048
     Dates: start: 20090304, end: 20100914
  19. LOXONIN [Concomitant]
     Indication: RHEUMATOID ARTHRITIS
     Dosage: 60 MG, 2X/DAY
     Route: 048
     Dates: start: 20090304, end: 20100914

REACTIONS (4)
  - MYCOBACTERIAL INFECTION [None]
  - GRANULOMA [None]
  - LYMPH NODE TUBERCULOSIS [None]
  - GASTRIC CANCER [None]
